FAERS Safety Report 6278450-0 (Version None)
Quarter: 2009Q3

REPORT INFORMATION
  Report Type: 
  Country: None (occurrence: None)
  Receive Date: 20090722
  Receipt Date: 20090710
  Transmission Date: 20100115
  Serious: Yes (Other)
  Sender: FDA-Public Use
  Company Number: PHEH2009US07431

PATIENT
  Sex: Female

DRUGS (3)
  1. GENTEAL GEL (NVO) [Suspect]
  2. RESTASIS [Suspect]
  3. REFRESH [Suspect]

REACTIONS (4)
  - BLINDNESS [None]
  - OCULAR HYPERAEMIA [None]
  - PAIN [None]
  - PHOTOPHOBIA [None]
